FAERS Safety Report 10097296 (Version 1)
Quarter: 2014Q2

REPORT INFORMATION
  Report Type: Spontaneous
  Country: US (occurrence: US)
  Receive Date: 20140422
  Receipt Date: 20140422
  Transmission Date: 20141212
  Serious: No
  Sender: FDA-Public Use
  Company Number: US-009507513-1404USA005709

PATIENT
  Age: 57 Year
  Sex: Female

DRUGS (7)
  1. NASONEX [Suspect]
     Indication: RHINITIS ALLERGIC
     Dosage: UNK
     Route: 045
     Dates: start: 201307
  2. NASONEX [Suspect]
     Dosage: 1 PUFF IN ONE NOSTRIL EVERY 8 DAYS
     Route: 045
  3. PREDNISONE [Suspect]
     Route: 048
  4. ESTRADIOL [Concomitant]
  5. ASCORBIC ACID [Concomitant]
  6. ASPIRIN [Concomitant]
  7. UBIDECARENONE [Concomitant]

REACTIONS (9)
  - Tachycardia [Not Recovered/Not Resolved]
  - Hyperhidrosis [Not Recovered/Not Resolved]
  - Palpitations [Not Recovered/Not Resolved]
  - Night sweats [Not Recovered/Not Resolved]
  - Insomnia [Not Recovered/Not Resolved]
  - Adrenal insufficiency [Unknown]
  - Adverse event [Unknown]
  - Underdose [Unknown]
  - Inappropriate schedule of drug administration [Unknown]
